FAERS Safety Report 4855155-1 (Version None)
Quarter: 2005Q4

REPORT INFORMATION
  Report Type: 
  Country: None (occurrence: None)
  Receive Date: 20051125
  Receipt Date: 20041102
  Transmission Date: 20060501
  Serious: Yes (Hospitalization)
  Sender: FDA-Public Use
  Company Number: US-JNJFOC-20040603975

PATIENT
  Age: 60 Year
  Sex: Female
  Weight: 78.0187 kg

DRUGS (6)
  1. LEVAQUIN [Suspect]
     Indication: INFECTION PROPHYLAXIS
     Dosage: 500 MG, 1 IN 1 DAY, ORAL
     Route: 048
     Dates: start: 20040508, end: 20040512
  2. LIPITOR [Suspect]
     Indication: HYPERLIPIDAEMIA
  3. CELEXA [Concomitant]
  4. VICODIN [Concomitant]
  5. LOPRESSOR [Concomitant]
  6. ASPIRIN [Concomitant]

REACTIONS (2)
  - HEPATITIS [None]
  - NON-CARDIAC CHEST PAIN [None]
